FAERS Safety Report 17285968 (Version 2)
Quarter: 2020Q1

REPORT INFORMATION
  Report Type: Spontaneous
  Country: ID (occurrence: ID)
  Receive Date: 20200118
  Receipt Date: 20200131
  Transmission Date: 20200409
  Serious: Yes (Other)
  Sender: FDA-Public Use
  Company Number: ID-ASTRAZENECA-2020SE07431

PATIENT
  Age: 21809 Day
  Sex: Male

DRUGS (1)
  1. IRESSA [Suspect]
     Active Substance: GEFITINIB
     Dosage: 250.0MG UNKNOWN
     Route: 048
     Dates: start: 20150210

REACTIONS (20)
  - Metastases to bone [Unknown]
  - Malignant neoplasm progression [Unknown]
  - Stomatitis [Unknown]
  - Cholecystitis [Unknown]
  - Renal cyst [Unknown]
  - Weight decreased [Unknown]
  - Metastases to liver [Unknown]
  - Cough [Unknown]
  - Lymphadenopathy [Unknown]
  - Cholelithiasis [Unknown]
  - Bronchiectasis [Unknown]
  - Emphysema [Unknown]
  - Pulmonary tuberculosis [Unknown]
  - Vena cava thrombosis [Unknown]
  - Metastases to lymph nodes [Unknown]
  - Pulmonary pneumatocele [Unknown]
  - Metastases to pleura [Unknown]
  - Rash [Unknown]
  - Spinal osteoarthritis [Unknown]
  - Decreased appetite [Unknown]

NARRATIVE: CASE EVENT DATE: 20160125
